FAERS Safety Report 15059587 (Version 1)
Quarter: 2018Q2

REPORT INFORMATION
  Report Type: Spontaneous
  Country: US (occurrence: US)
  Receive Date: 20180625
  Receipt Date: 20180625
  Transmission Date: 20180711
  Serious: No
  Sender: FDA-Public Use
  Company Number: US-SA-2018SA160569

PATIENT
  Sex: Female

DRUGS (6)
  1. ASPIRIN (E.C.) [Concomitant]
     Active Substance: ASPIRIN
  2. ALLEGRA [Concomitant]
     Active Substance: FEXOFENADINE HYDROCHLORIDE
  3. DUPIXENT [Suspect]
     Active Substance: DUPILUMAB
  4. VITAMIN E NAT [Concomitant]
  5. PREDNISOLONE. [Concomitant]
     Active Substance: PREDNISOLONE
  6. CRANBERRY CR [Concomitant]

REACTIONS (1)
  - Tongue disorder [Not Recovered/Not Resolved]
